FAERS Safety Report 10071524 (Version 3)
Quarter: 2014Q2

REPORT INFORMATION
  Report Type: Spontaneous
  Country: CH (occurrence: CH)
  Receive Date: 20140410
  Receipt Date: 20140522
  Transmission Date: 20141212
  Serious: Yes (Other)
  Sender: FDA-Public Use
  Company Number: CH-GILEAD-2014-0099261

PATIENT
  Age: 53 Year
  Sex: Female

DRUGS (5)
  1. ATRIPLA [Suspect]
     Indication: HIV INFECTION
     Dosage: 1 DF, QD
     Route: 048
     Dates: start: 20120909, end: 20140214
  2. PARACETAMOL [Suspect]
     Indication: PAIN
     Dosage: 500 MG, TID
     Route: 048
  3. TENORMINE [Concomitant]
     Indication: HYPERTENSION
  4. CONDROSULF [Concomitant]
     Indication: OSTEOARTHRITIS
  5. RENNIE                             /01739201/ [Concomitant]
     Indication: GASTRITIS

REACTIONS (2)
  - Thrombocytopenia [Not Recovered/Not Resolved]
  - Liver injury [Recovering/Resolving]
